FAERS Safety Report 22046642 (Version 2)
Quarter: 2023Q1

REPORT INFORMATION
  Report Type: Spontaneous
  Country: BE (occurrence: BE)
  Receive Date: 20230228
  Receipt Date: 20230322
  Transmission Date: 20230417
  Serious: Yes (Other)
  Sender: FDA-Public Use
  Company Number: BE-NOVOPROD-966629

PATIENT
  Age: 63 Year
  Sex: Female
  Weight: 128 kg

DRUGS (4)
  1. OZEMPIC [Suspect]
     Active Substance: SEMAGLUTIDE
     Indication: Product used for unknown indication
     Dosage: 15 CLICKS FOR 2 WEEKS
  2. OZEMPIC [Suspect]
     Active Substance: SEMAGLUTIDE
     Dosage: 20 CLICKS
  3. OZEMPIC [Suspect]
     Active Substance: SEMAGLUTIDE
     Dosage: 50 CLICKS
  4. COVERAM [Concomitant]
     Active Substance: AMLODIPINE\PERINDOPRIL
     Indication: Hypertension
     Dosage: TABLET/ DOSE FREQUENCY : 1 IN THE MORNING
     Dates: start: 2007

REACTIONS (2)
  - Lower limb fracture [Unknown]
  - Off label use [Unknown]

NARRATIVE: CASE EVENT DATE: 20230301
